FAERS Safety Report 11585239 (Version 3)
Quarter: 2015Q4

REPORT INFORMATION
  Report Type: Spontaneous
  Country: US (occurrence: US)
  Receive Date: 20151001
  Receipt Date: 20151215
  Transmission Date: 20160304
  Serious: Yes (Other)
  Sender: FDA-Public Use
  Company Number: US-SA-2015SA149352

PATIENT
  Age: 33 Year
  Sex: Female

DRUGS (4)
  1. LANTUS [Suspect]
     Active Substance: INSULIN GLARGINE
     Indication: TYPE 1 DIABETES MELLITUS
     Dosage: DOSE:27 UNIT(S)
     Route: 065
     Dates: start: 2010
  2. CLONAZEPAM. [Concomitant]
     Active Substance: CLONAZEPAM
  3. CARBAMAZEPINE. [Concomitant]
     Active Substance: CARBAMAZEPINE
  4. HUMALOG [Concomitant]
     Active Substance: INSULIN LISPRO

REACTIONS (5)
  - Blood glucose increased [Recovered/Resolved]
  - Seizure [Unknown]
  - Memory impairment [Unknown]
  - Drug ineffective [Unknown]
  - Blood glucose fluctuation [Recovered/Resolved]
